FAERS Safety Report 8325569 (Version 8)
Quarter: 2013Q2

REPORT INFORMATION
  Report Type: Report from Study
  Country: US (occurrence: US)
  Receive Date: 20120106
  Receipt Date: 20130614
  Transmission Date: 20140414
  Serious: Yes (Other)
  Sender: FDA-Public Use
  Company Number: US-BAYER-2012-001368

PATIENT
  Age: 76 Year
  Sex: Female
  Weight: 56.24 kg

DRUGS (8)
  1. NEXAVAR [Suspect]
     Indication: HEPATIC CANCER
     Dosage: 400 MG, BID
     Route: 048
     Dates: start: 20111020
  2. NEXAVAR [Suspect]
     Indication: HEPATIC CANCER
     Dosage: 400 MG, BID
     Route: 048
     Dates: start: 2011, end: 2011
  3. NEXAVAR [Suspect]
     Indication: HEPATIC CANCER
     Dosage: UNK
     Route: 048
  4. NEXAVAR [Suspect]
     Indication: HEPATIC CANCER
     Dosage: DAILY DOSE 800 MG
     Route: 048
  5. NEXAVAR [Suspect]
     Indication: HEPATIC CANCER
     Dosage: 400 MG, QD
     Dates: start: 201111
  6. NEXAVAR [Suspect]
     Indication: HEPATIC CANCER
     Dosage: 400 MG, BID (2X200MG BID)
     Route: 048
     Dates: start: 20111020
  7. NEXAVAR [Suspect]
     Indication: HEPATIC CANCER
     Dosage: 400 MG, QD
     Route: 048
     Dates: start: 20111020
  8. NEXAVAR [Suspect]
     Indication: HEPATIC CANCER
     Dosage: 400 MG, BID
     Route: 048
     Dates: start: 201301

REACTIONS (14)
  - Abasia [None]
  - Malaise [None]
  - Hyperaesthesia [None]
  - Mouth ulceration [None]
  - Adverse drug reaction [None]
  - Hyperaesthesia [Recovering/Resolving]
  - Glossodynia [Recovering/Resolving]
  - Palmar-plantar erythrodysaesthesia syndrome [None]
  - Skin lesion [None]
  - Stomatitis [None]
  - Musculoskeletal pain [None]
  - Erythema [None]
  - Pain in extremity [None]
  - Local swelling [None]
